FAERS Safety Report 10581669 (Version 1)
Quarter: 2014Q4

REPORT INFORMATION
  Report Type: Spontaneous
  Country: US (occurrence: US)
  Receive Date: 20141113
  Receipt Date: 20141113
  Transmission Date: 20150529
  Serious: No
  Sender: FDA-Public Use
  Company Number: US-BAYER-2014-162749

PATIENT
  Age: 40 Year
  Sex: Female

DRUGS (2)
  1. MAGNEVIST [Suspect]
     Active Substance: GADOPENTETATE DIMEGLUMINE
     Indication: BREAST SCAN
     Dosage: 5 CC ONCE
     Route: 042
     Dates: start: 20141024, end: 20141024
  2. MAGNEVIST [Suspect]
     Active Substance: GADOPENTETATE DIMEGLUMINE
     Indication: BREAST SCAN
     Dosage: 20 CC, ONCE
     Route: 042
     Dates: start: 20141024, end: 20141024

REACTIONS (3)
  - Oral discomfort [Recovered/Resolved]
  - Dizziness [Recovered/Resolved]
  - Rhinorrhoea [Recovered/Resolved]

NARRATIVE: CASE EVENT DATE: 20141024
